FAERS Safety Report 11835813 (Version 3)
Quarter: 2016Q2

REPORT INFORMATION
  Report Type: Spontaneous
  Country: JP (occurrence: JP)
  Receive Date: 20151215
  Receipt Date: 20160518
  Transmission Date: 20160815
  Serious: Yes (Other)
  Sender: FDA-Public Use
  Company Number: PHJP2015JP021398

PATIENT
  Age: 75 Year
  Sex: Male

DRUGS (1)
  1. COSENTYX [Suspect]
     Active Substance: SECUKINUMAB
     Indication: PSORIATIC ARTHROPATHY
     Dosage: 300 MG,
     Route: 058
     Dates: start: 20151030, end: 20151120

REACTIONS (2)
  - Interstitial lung disease [Recovering/Resolving]
  - Cell marker increased [Unknown]

NARRATIVE: CASE EVENT DATE: 20151127
